FAERS Safety Report 7499111-6 (Version None)
Quarter: 2011Q2

REPORT INFORMATION
  Report Type: 
  Country: None (occurrence: None)
  Receive Date: 20110524
  Receipt Date: 20110217
  Transmission Date: 20111010
  Serious: No
  Sender: FDA-Public Use
  Company Number: US-NOVEN-11US001819

PATIENT
  Sex: Female
  Weight: 23.583 kg

DRUGS (2)
  1. SEROQUEL [Concomitant]
     Indication: SLEEP DISORDER
     Dosage: 25 MG, QD
     Route: 048
     Dates: start: 20101001
  2. DAYTRANA [Suspect]
     Indication: ATTENTION DEFICIT/HYPERACTIVITY DISORDER
     Dosage: 2 20 MG PATCHES/DAY
     Route: 062
     Dates: start: 20090801

REACTIONS (3)
  - WRONG TECHNIQUE IN DRUG USAGE PROCESS [None]
  - PRODUCT QUALITY ISSUE [None]
  - NO ADVERSE EVENT [None]
